FAERS Safety Report 25005427 (Version 1)
Quarter: 2025Q1

REPORT INFORMATION
  Report Type: Spontaneous
  Country: US (occurrence: US)
  Receive Date: 20250224
  Receipt Date: 20250224
  Transmission Date: 20250409
  Serious: No
  Sender: TEVA
  Company Number: US-TEVA-VS-3297158

PATIENT
  Age: 50 Year
  Sex: Female

DRUGS (1)
  1. AUSTEDO XR [Suspect]
     Active Substance: DEUTETRABENAZINE
     Indication: Tardive dyskinesia
     Dosage: 2 TABLETS
     Route: 065

REACTIONS (5)
  - Fall [Unknown]
  - Product use issue [Unknown]
  - Balance disorder [Unknown]
  - Product use issue [Unknown]
  - Tremor [Unknown]

NARRATIVE: CASE EVENT DATE: 20250101
